FAERS Safety Report 25741209 (Version 1)
Quarter: 2025Q3

REPORT INFORMATION
  Report Type: Spontaneous
  Country: US (occurrence: US)
  Receive Date: 20250829
  Receipt Date: 20250829
  Transmission Date: 20251021
  Serious: No
  Sender: MYLAN
  Company Number: US-MYLANLABS-2025M1072385

PATIENT

DRUGS (4)
  1. XANAX [Suspect]
     Active Substance: ALPRAZOLAM
     Indication: Anxiety
     Dosage: 1 MILLIGRAM, BID (2 TIMES DAILY, AS NEEDED)
  2. XANAX [Suspect]
     Active Substance: ALPRAZOLAM
     Indication: Depression
  3. XANAX [Suspect]
     Active Substance: ALPRAZOLAM
     Indication: Anxiety
  4. XANAX [Suspect]
     Active Substance: ALPRAZOLAM
     Indication: Panic disorder

REACTIONS (1)
  - Off label use [Unknown]
